FAERS Safety Report 4401325-6 (Version None)
Quarter: 2004Q3

REPORT INFORMATION
  Report Type: 
  Country: None (occurrence: None)
  Receive Date: 20040907
  Receipt Date: 20040309
  Transmission Date: 20050211
  Serious: No
  Sender: FDA-Public Use
  Company Number: US-BRISTOL-MYERS SQUIBB COMPANY-12528204

PATIENT
  Age: 44 Year
  Sex: Female
  Weight: 50 kg

DRUGS (4)
  1. COUMADIN [Suspect]
     Indication: TRANSIENT ISCHAEMIC ATTACK
     Route: 048
     Dates: start: 20040101
  2. DILANTIN [Concomitant]
  3. LOPRESSOR [Concomitant]
  4. SYNTHROID [Concomitant]

REACTIONS (3)
  - FEELING COLD [None]
  - FEELING HOT [None]
  - HYPERHIDROSIS [None]
